FAERS Safety Report 9571114 (Version 1)
Quarter: 2013Q4

REPORT INFORMATION
  Report Type: Report from Study
  Country: CA (occurrence: CA)
  Receive Date: 20131001
  Receipt Date: 20131001
  Transmission Date: 20140711
  Serious: Yes (Other)
  Sender: FDA-Public Use
  Company Number: CA-JNJFOC-20130914947

PATIENT
  Sex: Female
  Weight: 50 kg

DRUGS (4)
  1. REMICADE [Suspect]
     Indication: CROHN^S DISEASE
     Route: 042
     Dates: start: 200812
  2. CLONAZEPAM [Concomitant]
     Route: 065
  3. CIPRALEX [Concomitant]
     Route: 065
  4. WELLBUTRIN [Concomitant]
     Route: 065

REACTIONS (2)
  - Lung infection [Unknown]
  - Chronic obstructive pulmonary disease [Unknown]
